FAERS Safety Report 20842044 (Version 10)
Quarter: 2025Q4

REPORT INFORMATION
  Report Type: Report from Study
  Country: CA (occurrence: CA)
  Receive Date: 20220518
  Receipt Date: 20251118
  Transmission Date: 20260118
  Serious: Yes (Other)
  Sender: UCB
  Company Number: CA-UCBSA-2022027079

PATIENT

DRUGS (11)
  1. CERTOLIZUMAB PEGOL [Suspect]
     Active Substance: CERTOLIZUMAB PEGOL
     Indication: Ankylosing spondylitis
     Dosage: 400 MILLIGRAM, EV 2 WEEKS(QOW)
  2. CERTOLIZUMAB PEGOL [Suspect]
     Active Substance: CERTOLIZUMAB PEGOL
     Indication: Psoriatic arthropathy
     Dosage: 200 MILLIGRAM, EV 2 WEEKS(QOW)
  3. CERTOLIZUMAB PEGOL [Suspect]
     Active Substance: CERTOLIZUMAB PEGOL
     Dosage: 200 MILLIGRAM, EV 2 WEEKS(QOW)
  4. CORTISONE [Concomitant]
     Active Substance: CORTISONE
     Indication: Back pain
     Dosage: UNK
  5. METHOTREXATE [Concomitant]
     Active Substance: METHOTREXATE
     Indication: Product used for unknown indication
     Dosage: UNK
  6. DIOVAN [Concomitant]
     Active Substance: VALSARTAN
     Indication: Product used for unknown indication
     Dosage: UNK
  7. apobisoprolol [Concomitant]
     Indication: Product used for unknown indication
     Dosage: UNK
  8. FOLIC ACID [Concomitant]
     Active Substance: FOLIC ACID
     Indication: Product used for unknown indication
     Dosage: UNK
  9. ASPIRIN [Concomitant]
     Active Substance: ASPIRIN
     Indication: Product used for unknown indication
     Dosage: UNK
  10. Teva-Lenoltec [Concomitant]
     Indication: Pain
     Dosage: UNK
  11. Teva-Lenoltec [Concomitant]
     Indication: Contusion

REACTIONS (13)
  - Lumbar spinal stenosis [Unknown]
  - Kidney infection [Unknown]
  - Psoriatic arthropathy [Not Recovered/Not Resolved]
  - Fall [Not Recovered/Not Resolved]
  - Dry mouth [Unknown]
  - Insomnia [Unknown]
  - Dysphonia [Unknown]
  - Secretion discharge [Unknown]
  - Contusion [Not Recovered/Not Resolved]
  - Renal pain [Not Recovered/Not Resolved]
  - Peripheral venous disease [Unknown]
  - Herpes zoster [Unknown]
  - Therapeutic product effect incomplete [Unknown]
